FAERS Safety Report 25451631 (Version 1)
Quarter: 2025Q2

REPORT INFORMATION
  Report Type: Spontaneous
  Country: US (occurrence: US)
  Receive Date: 20250618
  Receipt Date: 20250618
  Transmission Date: 20250717
  Serious: No
  Sender: ROCHE
  Company Number: US-ROCHE-10000310349

PATIENT
  Age: 85 Year
  Sex: Male
  Weight: 119.29 kg

DRUGS (2)
  1. VABYSMO [Suspect]
     Active Substance: FARICIMAB-SVOA
     Indication: Neovascular age-related macular degeneration
     Dosage: LAST INJECTION OF FARICIMAB: 02-JUN-2025?INJECTION IN RIGHT EYE
     Route: 050
  2. VABYSMO [Suspect]
     Active Substance: FARICIMAB-SVOA
     Dosage: INJECTION IN LEFT EYE
     Route: 050

REACTIONS (1)
  - Eye disorder [Not Recovered/Not Resolved]
